FAERS Safety Report 21179622 (Version 1)
Quarter: 2022Q3

REPORT INFORMATION
  Report Type: Report from Study
  Country: US (occurrence: US)
  Receive Date: 20220805
  Receipt Date: 20220805
  Transmission Date: 20221027
  Serious: Yes (Hospitalization, Other)
  Sender: FDA-Public Use
  Company Number: US-BAYER-2022A089310

PATIENT
  Sex: Male

DRUGS (4)
  1. STIVARGA [Suspect]
     Active Substance: REGORAFENIB
     Indication: Colon cancer
     Dosage: 80 MG, QD (WEEK 1 TAKE 2 TABLETS ONCE DAILY)
     Dates: start: 20220704
  2. STIVARGA [Suspect]
     Active Substance: REGORAFENIB
     Indication: Colorectal cancer
     Dosage: 120 MG, QD (WEEK 2 TAKE 3 TABLETS ONCE DAILY)
  3. STIVARGA [Suspect]
     Active Substance: REGORAFENIB
     Indication: Colon cancer
     Dosage: 160 UNK (WEEK 3 TAKE 4 TABLETS ONCE DAILY, THEN TAKE 7 DAYS OFF)
  4. LONSURF [Concomitant]
     Active Substance: TIPIRACIL HYDROCHLORIDE\TRIFLURIDINE
     Indication: Colorectal cancer
     Dosage: 60 MG, BID (MONDAY TO FRIDAY,DAYS 1-5 AND DAYS 8 -12 EVERY 28 DAYS )
     Route: 048
     Dates: start: 20211015

REACTIONS (9)
  - Transfusion [Unknown]
  - Cell death [None]
  - Malaise [Unknown]
  - Gait inability [Unknown]
  - Full blood count abnormal [Unknown]
  - Off label use [None]
  - Drug ineffective [None]
  - Pain [None]
  - Haematology test [None]
